FAERS Safety Report 19143933 (Version 1)
Quarter: 2021Q2

REPORT INFORMATION
  Report Type: Spontaneous
  Country: ES (occurrence: ES)
  Receive Date: 20210416
  Receipt Date: 20210416
  Transmission Date: 20210717
  Serious: Yes (Other)
  Sender: FDA-Public Use
  Company Number: ES-AUROBINDO-AUR-APL-2017-04168

PATIENT
  Age: 60 Year
  Sex: Female

DRUGS (3)
  1. TIMOLOL. [Interacting]
     Active Substance: TIMOLOL
     Indication: GLAUCOMA
     Dosage: UNK
     Route: 065
  2. DORZOLAMIDE [Suspect]
     Active Substance: DORZOLAMIDE
     Indication: GLAUCOMA
     Dosage: UNK
     Route: 065
  3. LATANOPROST  EYE DROPS, SOLUTION [Suspect]
     Active Substance: LATANOPROST
     Indication: GLAUCOMA
     Dosage: UNKNOWN
     Route: 031

REACTIONS (12)
  - Leukopenia [Recovered/Resolved]
  - Drug interaction [Unknown]
  - Hypoalbuminaemia [Recovered/Resolved]
  - Pyrexia [Recovered/Resolved]
  - Swelling face [Recovered/Resolved]
  - Liver function test abnormal [Recovered/Resolved]
  - Genital erythema [Recovered/Resolved]
  - Toxic epidermal necrolysis [Recovered/Resolved]
  - Neutropenia [Recovered/Resolved]
  - Erythema [Recovered/Resolved]
  - Conjunctivitis [Recovered/Resolved]
  - Lymphopenia [Recovered/Resolved]
